FAERS Safety Report 9823818 (Version 2)
Quarter: 2014Q1

REPORT INFORMATION
  Report Type: Spontaneous
  Country: US (occurrence: US)
  Receive Date: 20140116
  Receipt Date: 20140116
  Transmission Date: 20141002
  Serious: Yes (Other)
  Sender: FDA-Public Use
  Company Number: US-GILEAD-2011-0040661

PATIENT
  Age: 85 Year
  Sex: Male
  Weight: 71.67 kg

DRUGS (10)
  1. LETAIRIS [Suspect]
     Indication: PULMONARY ARTERIAL HYPERTENSION
     Route: 048
     Dates: start: 20091022, end: 20110608
  2. AMLODIPINE [Concomitant]
  3. ASA [Concomitant]
  4. CLORAZEPATE DIPOTASSIUM [Concomitant]
  5. FUROSEMIDE [Concomitant]
  6. LEVOTHYROXINE [Concomitant]
  7. FOSAMAX [Concomitant]
  8. KCL [Concomitant]
  9. OMEPRAZOLE [Concomitant]
  10. TESTOSTERONE [Concomitant]

REACTIONS (4)
  - Swollen tongue [Recovered/Resolved]
  - Swelling face [Recovered/Resolved]
  - Muscle spasms [Recovered/Resolved]
  - Oedema peripheral [Not Recovered/Not Resolved]
